FAERS Safety Report 17798201 (Version 1)
Quarter: 2020Q2

REPORT INFORMATION
  Report Type: Spontaneous
  Country: GB (occurrence: GB)
  Receive Date: 20200518
  Receipt Date: 20200518
  Transmission Date: 20200714
  Serious: Yes (Other)
  Sender: FDA-Public Use
  Company Number: GB-TEVA-2020-GB-1235584

PATIENT
  Age: 4 Year
  Sex: Female

DRUGS (3)
  1. CALPOL [Concomitant]
     Active Substance: ACETAMINOPHEN
  2. PIRITON [Concomitant]
     Active Substance: CHLORPHENIRAMINE MALEATE
  3. SALAMOL [Suspect]
     Active Substance: ALBUTEROL
     Indication: COUGH
     Route: 055
     Dates: start: 20200415, end: 20200426

REACTIONS (2)
  - Sleep disorder [Recovering/Resolving]
  - Hallucination [Recovering/Resolving]
